FAERS Safety Report 6748145-5 (Version None)
Quarter: 2010Q2

REPORT INFORMATION
  Report Type: 
  Country: None (occurrence: None)
  Receive Date: 20100531
  Receipt Date: 20100524
  Transmission Date: 20101027
  Serious: No
  Sender: FDA-Public Use
  Company Number: US-JNJFOC-20100509931

PATIENT
  Sex: Female
  Weight: 76.2 kg

DRUGS (1)
  1. DURAGESIC-100 [Suspect]
     Indication: BACK PAIN
     Route: 062
     Dates: start: 20100519

REACTIONS (1)
  - WRONG TECHNIQUE IN DRUG USAGE PROCESS [None]
